FAERS Safety Report 9439930 (Version 2)
Quarter: 2014Q2

REPORT INFORMATION
  Report Type: Report from Study
  Country: US (occurrence: US)
  Receive Date: 20130805
  Receipt Date: 20140414
  Transmission Date: 20141212
  Serious: Yes (Other)
  Sender: FDA-Public Use
  Company Number: US-SANOFI-AVENTIS-2013SA077650

PATIENT
  Age: 67 Year
  Sex: Male
  Weight: 88.45 kg

DRUGS (7)
  1. AUBAGIO [Suspect]
     Indication: MULTIPLE SCLEROSIS
     Route: 065
     Dates: start: 20121031, end: 20130325
  2. AUBAGIO [Suspect]
     Indication: MULTIPLE SCLEROSIS
     Route: 065
  3. COMBIGAN [Concomitant]
     Indication: OPEN ANGLE GLAUCOMA
     Dosage: 0.2/0.5% OPTHALMIC SOLUTION
     Dates: start: 20101110
  4. ALL OTHER THERAPEUTIC PRODUCTS [Concomitant]
     Indication: GLAUCOMA
     Dosage: 0.01% OPTHALMIC SOLUTION
  5. AZOPT [Concomitant]
     Indication: BLOOD PRESSURE
     Dosage: 1% OPTHALMIC SOLUTION
     Dates: start: 201108
  6. CODEINE [Concomitant]
     Indication: HEADACHE
     Dosage: 3 TABLETS
  7. CODEINE [Concomitant]
     Indication: MYALGIA
     Dosage: 3 TABLETS

REACTIONS (9)
  - Anaemia [Recovering/Resolving]
  - Haemorrhage [Recovering/Resolving]
  - Multiple sclerosis relapse [Recovered/Resolved]
  - Dizziness [Recovered/Resolved]
  - Dizziness [Recovered/Resolved]
  - Gait disturbance [Recovered/Resolved]
  - Fall [Recovered/Resolved]
  - Asthenia [Recovered/Resolved]
  - Headache [Recovered/Resolved]
